FAERS Safety Report 7791645-X (Version None)
Quarter: 2011Q4

REPORT INFORMATION
  Report Type: 
  Country: None (occurrence: None)
  Receive Date: 20111003
  Receipt Date: 20110919
  Transmission Date: 20120403
  Serious: Yes (Other)
  Sender: FDA-Public Use
  Company Number: US-ELI_LILLY_AND_COMPANY-US201106001637

PATIENT
  Sex: Female

DRUGS (7)
  1. FENTANYL [Concomitant]
     Indication: PAIN
     Dosage: 50 UG, UNK
  2. CODEINE [Concomitant]
  3. FENTANYL [Concomitant]
     Dosage: 25 UG, UNK
  4. FORTEO [Suspect]
     Dosage: 20 UG, QD
  5. GLUCOPHAGE [Concomitant]
  6. FORTEO [Suspect]
     Indication: OSTEOPOROSIS
     Dosage: 20 UG, QD
     Dates: start: 20110527
  7. DARVON [Concomitant]

REACTIONS (10)
  - ARTHRALGIA [None]
  - DIARRHOEA [None]
  - PERIARTHRITIS [None]
  - MALAISE [None]
  - NAIL DISORDER [None]
  - NAUSEA [None]
  - SPINAL FRACTURE [None]
  - VOMITING [None]
  - WEIGHT DECREASED [None]
  - PAIN [None]
